FAERS Safety Report 9276432 (Version 2)
Quarter: 2013Q2

REPORT INFORMATION
  Report Type: Spontaneous
  Country: DE (occurrence: DE)
  Receive Date: 20130507
  Receipt Date: 20130614
  Transmission Date: 20140414
  Serious: Yes (Disabling)
  Sender: FDA-Public Use
  Company Number: DE-GLAXOSMITHKLINE-D0079688A

PATIENT
  Age: 75 Year
  Sex: Male
  Weight: 70 kg

DRUGS (4)
  1. VOTRIENT [Suspect]
     Indication: RENAL CELL CARCINOMA
     Dosage: 800MG PER DAY
     Route: 048
     Dates: start: 20120820, end: 20130402
  2. BISOPROLOL [Concomitant]
     Indication: HYPERTENSION
     Dosage: 10MG PER DAY
     Route: 048
     Dates: start: 20090204
  3. AMLODIPIN [Concomitant]
     Indication: HYPERTENSION
     Dosage: 5MG PER DAY
     Route: 048
     Dates: start: 20090204
  4. TORASEMID [Concomitant]
     Indication: CARDIAC FAILURE
     Dosage: 5MG PER DAY
     Route: 048
     Dates: start: 20090204

REACTIONS (2)
  - Renal failure [Not Recovered/Not Resolved]
  - Haemoptysis [Recovered/Resolved]
